FAERS Safety Report 23792919 (Version 1)
Quarter: 2024Q2

REPORT INFORMATION
  Report Type: Other
  Country: ES (occurrence: ES)
  Receive Date: 20240429
  Receipt Date: 20240429
  Transmission Date: 20240716
  Serious: Yes (Death)
  Sender: FDA-Public Use
  Company Number: None

PATIENT

DRUGS (10)
  1. LEVOFLOXACIN [Interacting]
     Active Substance: LEVOFLOXACIN
     Indication: Respiratory tract infection
     Dosage: 500 MILLIGRAM, QD
     Route: 048
     Dates: start: 20240225, end: 20240226
  2. PREGABALIN [Interacting]
     Active Substance: PREGABALIN
     Indication: Pain
     Dosage: 600 MILLIGRAM, QD
     Route: 048
     Dates: start: 2023, end: 20240226
  3. AMITRIPTYLINE [Interacting]
     Active Substance: AMITRIPTYLINE
     Indication: Pain
     Dosage: 50 MILLIGRAM, QD
     Route: 048
     Dates: start: 2023, end: 20240226
  4. CARBAMAZEPINE [Interacting]
     Active Substance: CARBAMAZEPINE
     Indication: Pain
     Dosage: 600 MILLIGRAM, QD
     Route: 048
     Dates: start: 2023, end: 20240226
  5. DIAZEPAM [Interacting]
     Active Substance: DIAZEPAM
     Indication: Pain
     Dosage: 10 MILLIGRAM, QD
     Route: 048
     Dates: start: 2023, end: 20240226
  6. LIDOCAINE [Interacting]
     Active Substance: LIDOCAINE
     Indication: Pain
     Dosage: 370 MILLIGRAM, 2 TOTAL
     Route: 042
     Dates: start: 20240216, end: 20240223
  7. METHOCARBAMOL [Interacting]
     Active Substance: METHOCARBAMOL
     Indication: Pain
     Dosage: 500 MILLIGRAM, QD
     Route: 048
     Dates: start: 2023, end: 20240226
  8. TRAZODONE [Interacting]
     Active Substance: TRAZODONE HYDROCHLORIDE
     Indication: Pain
     Dosage: 150 MILLIGRAM, QD
     Route: 048
     Dates: start: 2023, end: 20240226
  9. TRAMADOL HYDROCHLORIDE [Interacting]
     Active Substance: TRAMADOL HYDROCHLORIDE
     Indication: Pain
     Dosage: 150 MILLIGRAM, TID
     Route: 048
     Dates: start: 20240213, end: 20240226
  10. TAPENTADOL [Interacting]
     Active Substance: TAPENTADOL
     Indication: Pain
     Dosage: 100 MILLIGRAM, BID
     Route: 048
     Dates: start: 20240205, end: 20240226

REACTIONS (1)
  - Sudden death [Fatal]

NARRATIVE: CASE EVENT DATE: 20240226
